FAERS Safety Report 10038824 (Version 1)
Quarter: 2014Q1

REPORT INFORMATION
  Report Type: Spontaneous
  Country: US (occurrence: US)
  Receive Date: 20140326
  Receipt Date: 20140326
  Transmission Date: 20141002
  Serious: Yes (Death, Hospitalization)
  Sender: FDA-Public Use
  Company Number: US-GLAXOSMITHKLINE-A1066563A

PATIENT
  Age: 81 Year
  Sex: Female

DRUGS (2)
  1. ADVAIR HFA [Suspect]
     Indication: RESPIRATORY DISORDER
     Dates: start: 20130423
  2. VENTOLIN [Suspect]
     Indication: RESPIRATORY DISORDER
     Dates: start: 20130423

REACTIONS (2)
  - Death [Fatal]
  - Investigation [Unknown]
